FAERS Safety Report 4886570-8 (Version None)
Quarter: 2006Q1

REPORT INFORMATION
  Report Type: 
  Country: None (occurrence: None)
  Receive Date: 20060118
  Receipt Date: 20060105
  Transmission Date: 20060701
  Serious: Yes (Hospitalization)
  Sender: FDA-Public Use
  Company Number: 174351

PATIENT
  Age: 65 Year
  Sex: Female
  Weight: 78.9259 kg

DRUGS (4)
  1. AVONEX [Suspect]
     Indication: MULTIPLE SCLEROSIS
     Dosage: 30 UG; QW; IM; 30 UG; QW; IM
     Route: 030
     Dates: start: 19990825, end: 20030101
  2. AVONEX [Suspect]
     Indication: MULTIPLE SCLEROSIS
     Dosage: 30 UG; QW; IM; 30 UG; QW; IM
     Route: 030
     Dates: end: 20030101
  3. GLYBURIDE [Concomitant]
  4. GLUCOPHAGE [Concomitant]

REACTIONS (13)
  - ASTHENIA [None]
  - CELLULITIS [None]
  - CONDITION AGGRAVATED [None]
  - DEVICE RELATED INFECTION [None]
  - FALL [None]
  - HAEMORRHAGE [None]
  - HYPERTENSION [None]
  - MULTIPLE SCLEROSIS [None]
  - MUSCULAR WEAKNESS [None]
  - OSTEOARTHRITIS [None]
  - THROMBOSIS [None]
  - URINARY TRACT INFECTION [None]
  - WHEELCHAIR USER [None]
